FAERS Safety Report 21935149 (Version 3)
Quarter: 2023Q4

REPORT INFORMATION
  Report Type: Report from Study
  Country: CA (occurrence: CA)
  Receive Date: 20230201
  Receipt Date: 20231006
  Transmission Date: 20240109
  Serious: Yes (Other)
  Sender: FDA-Public Use
  Company Number: CA-MYLANLABS-2022M1119243

PATIENT

DRUGS (5)
  1. HULIO [Suspect]
     Active Substance: ADALIMUMAB-FKJP
     Indication: Crohn^s disease
     Dosage: 40 MILLIGRAM, QW (EVERY 7 DAYS)
     Route: 058
     Dates: start: 20210803
  2. PROPRANOLOL [Concomitant]
     Active Substance: PROPRANOLOL HYDROCHLORIDE
     Indication: Anxiety
     Dosage: UNK
     Route: 065
  3. PROPRANOLOL [Concomitant]
     Active Substance: PROPRANOLOL HYDROCHLORIDE
     Indication: Depression
  4. ESCITALOPRAM [Concomitant]
     Active Substance: ESCITALOPRAM OXALATE
     Indication: Anxiety
     Dosage: UNK
     Route: 065
  5. ESCITALOPRAM [Concomitant]
     Active Substance: ESCITALOPRAM OXALATE
     Indication: Depression

REACTIONS (4)
  - Crohn^s disease [Unknown]
  - Product dose omission issue [Unknown]
  - Inappropriate schedule of product administration [Unknown]
  - Off label use [Unknown]

NARRATIVE: CASE EVENT DATE: 20221026
